FAERS Safety Report 6534626-6 (Version None)
Quarter: 2010Q1

REPORT INFORMATION
  Report Type: 
  Country: None (occurrence: None)
  Receive Date: 20100112
  Receipt Date: 20100108
  Transmission Date: 20100710
  Serious: Yes (Hospitalization)
  Sender: FDA-Public Use
  Company Number: B0624308A

PATIENT
  Sex: Female

DRUGS (11)
  1. AUGMENTIN [Suspect]
     Dosage: 1G THREE TIMES PER DAY
     Route: 048
     Dates: start: 20091106, end: 20091107
  2. LAMALINE [Suspect]
     Indication: PAIN
     Dosage: 1UNIT AS REQUIRED
     Route: 048
     Dates: start: 20091022, end: 20091106
  3. CALCIPARINE [Suspect]
     Indication: DEEP VEIN THROMBOSIS
     Dosage: .6ML TWICE PER DAY
     Route: 058
     Dates: start: 20091103, end: 20091109
  4. ROCEPHIN [Concomitant]
     Dosage: 1G PER DAY
     Route: 042
     Dates: start: 20091107, end: 20091108
  5. RISPERDAL [Concomitant]
     Dosage: 4.5MG PER DAY
     Route: 048
     Dates: end: 20091101
  6. NOCTRAN [Concomitant]
     Dosage: 5MG PER DAY
     Route: 048
  7. PRAZEPAM [Concomitant]
     Dosage: 25MG PER DAY
     Route: 048
  8. NEXIUM [Concomitant]
     Dosage: 1UNIT PER DAY
     Route: 048
  9. KARDEGIC [Concomitant]
     Dosage: 75MG PER DAY
     Route: 048
  10. LOVENOX [Concomitant]
     Indication: DEEP VEIN THROMBOSIS
     Route: 065
     Dates: start: 20091109, end: 20091111
  11. COMPRESSION STOCKINGS [Concomitant]
     Indication: DEEP VEIN THROMBOSIS
     Dates: start: 20091111

REACTIONS (5)
  - EPIDERMAL NECROSIS [None]
  - LEUKOCYTOCLASTIC VASCULITIS [None]
  - RASH MACULO-PAPULAR [None]
  - SKIN NECROSIS [None]
  - TOXIC SKIN ERUPTION [None]
